FAERS Safety Report 5465219-X (Version None)
Quarter: 2007Q3

REPORT INFORMATION
  Report Type: 
  Country: None (occurrence: None)
  Receive Date: 20070924
  Receipt Date: 20070917
  Transmission Date: 20080115
  Serious: Yes (Disabling)
  Sender: FDA-Public Use
  Company Number: PHNR2007AU01881

PATIENT
  Age: 20 Year
  Sex: Male
  Weight: 70 kg

DRUGS (3)
  1. NARAMIG [Suspect]
     Indication: MIGRAINE
     Dosage: 2.5MG, ONCE/SINGLE
     Route: 048
     Dates: start: 20060901, end: 20060901
  2. ACETAMINOPHEN W/ CODEINE [Suspect]
     Indication: MIGRAINE
     Dosage: UNK, ONCE/SINGLE
     Route: 048
     Dates: start: 20060901, end: 20060901
  3. CAFERGOT [Suspect]
     Indication: MIGRAINE
     Dosage: UNK, ONCE/SINGLE
     Route: 048
     Dates: start: 20060901, end: 20060901

REACTIONS (2)
  - ANXIETY [None]
  - PARALYSIS [None]
